FAERS Safety Report 7909485 (Version 3)
Quarter: 2012Q4

REPORT INFORMATION
  Report Type: 
  Country: US (occurrence: US)
  Receive Date: 20110421
  Receipt Date: 20121024
  Transmission Date: 20130627
  Serious: No
  Sender: FDA-Public Use
  Company Number: US-ASTRAZENECA-2010SE53312

PATIENT
  Age: 62 Year
  Sex: Male

DRUGS (3)
  1. NEXIUM [Suspect]
     Route: 048
  2. TOPROL XL [Suspect]
     Route: 048
  3. CYMBALTA [Suspect]
     Route: 048

REACTIONS (7)
  - Visual impairment [Unknown]
  - Memory impairment [Unknown]
  - Fibromyalgia [Unknown]
  - Dyspepsia [Unknown]
  - Intentional drug misuse [Unknown]
  - Dizziness [Unknown]
  - Dizziness [Unknown]
